FAERS Safety Report 7489873-6 (Version None)
Quarter: 2011Q2

REPORT INFORMATION
  Report Type: 
  Country: None (occurrence: None)
  Receive Date: 20110511
  Receipt Date: 20110503
  Transmission Date: 20111010
  Serious: Yes (Other)
  Sender: FDA-Public Use
  Company Number: US-1185722

PATIENT
  Age: 70 Year
  Sex: Male
  Weight: 66.2252 kg

DRUGS (2)
  1. TRIFLURIDINE [Suspect]
     Indication: EYE PAIN
     Dosage: 1 GTT Q2H OD OPHTHALMIC
     Route: 047
     Dates: start: 20110324, end: 20110325
  2. TRIFLURIDINE [Suspect]
     Indication: PHOTOPHOBIA
     Dosage: 1 GTT Q2H OD OPHTHALMIC
     Route: 047
     Dates: start: 20110324, end: 20110325

REACTIONS (5)
  - DRUG INEFFECTIVE [None]
  - EYE PAIN [None]
  - EYE SWELLING [None]
  - EYE IRRITATION [None]
  - VISUAL ACUITY REDUCED [None]
